FAERS Safety Report 8459701-0 (Version None)
Quarter: 2012Q2

REPORT INFORMATION
  Report Type: 
  Country: None (occurrence: None)
  Receive Date: 20120622
  Receipt Date: 20120614
  Transmission Date: 20120825
  Serious: Yes (Other)
  Sender: FDA-Public Use
  Company Number: CH-JNJFOC-20120608243

PATIENT
  Sex: Male

DRUGS (3)
  1. XARELTO [Suspect]
     Indication: ATRIAL FIBRILLATION
     Route: 048
  2. XARELTO [Suspect]
     Indication: CEREBROVASCULAR ACCIDENT PROPHYLAXIS
     Route: 048
  3. CORDARONE [Concomitant]

REACTIONS (3)
  - VISUAL FIELD DEFECT [None]
  - EMBOLISM ARTERIAL [None]
  - CONJUNCTIVAL HAEMORRHAGE [None]
